FAERS Safety Report 5255495-0 (Version None)
Quarter: 2007Q1

REPORT INFORMATION
  Report Type: 
  Country: None (occurrence: None)
  Receive Date: 20070228
  Receipt Date: 20070216
  Transmission Date: 20070707
  Serious: Yes (Life-Threatening)
  Sender: FDA-Public Use
  Company Number: 2007AL000683

PATIENT
  Age: 50 Year
  Sex: Male

DRUGS (5)
  1. METFORMIN HYDROCHLORIDE [Suspect]
     Indication: DIABETES MELLITUS
     Dosage: 850 MG; QID; PO
     Route: 048
  2. GLIMEPIRIDE [Concomitant]
  3. FUROSEMIDE [Concomitant]
  4. ASPIRIN [Concomitant]
  5. CITALOPRAM HYDROBROMIDE [Concomitant]

REACTIONS (2)
  - LACTIC ACIDOSIS [None]
  - RENAL FAILURE [None]
